FAERS Safety Report 20633870 (Version 14)
Quarter: 2023Q1

REPORT INFORMATION
  Report Type: Other
  Country: CA (occurrence: None)
  Receive Date: 20220324
  Receipt Date: 20230116
  Transmission Date: 20230418
  Serious: No
  Sender: FDA-Public Use
  Company Number: CA-ROCHE-2798675

PATIENT
  Age: 36 Year
  Sex: Female
  Weight: 74.456 kg

DRUGS (6)
  1. OCREVUS [Suspect]
     Active Substance: OCRELIZUMAB
     Indication: Relapsing-remitting multiple sclerosis
     Dosage: 300 MG AT DAY 0 AND 14, THEN 600 MG EVERY 6 MONTH
     Route: 042
     Dates: start: 20210324
  2. OCREVUS [Suspect]
     Active Substance: OCRELIZUMAB
     Route: 042
  3. GRAVOL [Suspect]
     Active Substance: DIMENHYDRINATE
     Indication: Product used for unknown indication
     Route: 065
  4. BENADRYL [Concomitant]
     Active Substance: DIPHENHYDRAMINE HYDROCHLORIDE
  5. MAGNESIUM [Concomitant]
     Active Substance: MAGNESIUM
  6. CYCLOBENZAPRINE [Concomitant]
     Active Substance: CYCLOBENZAPRINE
     Indication: Myalgia

REACTIONS (15)
  - Infusion related reaction [Not Recovered/Not Resolved]
  - Nasopharyngitis [Unknown]
  - Cough [Recovered/Resolved]
  - Oropharyngeal pain [Recovered/Resolved]
  - Headache [Unknown]
  - Poor quality sleep [Unknown]
  - COVID-19 [Unknown]
  - Fungal infection [Unknown]
  - Infusion related reaction [Recovered/Resolved]
  - COVID-19 [Not Recovered/Not Resolved]
  - Fatigue [Unknown]
  - Viral infection [Unknown]
  - Pyrexia [Unknown]
  - Back pain [Unknown]
  - Headache [Not Recovered/Not Resolved]

NARRATIVE: CASE EVENT DATE: 20210324
